FAERS Safety Report 5140767-0 (Version None)
Quarter: 2006Q4

REPORT INFORMATION
  Report Type: 
  Country: None (occurrence: None)
  Receive Date: 20061025
  Receipt Date: 20061013
  Transmission Date: 20070319
  Serious: Yes (Other)
  Sender: FDA-Public Use
  Company Number: 2006S1000249

PATIENT
  Age: 69 Year
  Sex: Male

DRUGS (3)
  1. ACITRETIN [Suspect]
     Indication: SQUAMOUS CELL CARCINOMA
     Dosage: 25 MG; QD; PO
     Route: 048
  2. CYCLOSPORINE [Concomitant]
  3. AZATHIOPRINE [Concomitant]

REACTIONS (2)
  - BALANCE DISORDER [None]
  - NORMAL PRESSURE HYDROCEPHALUS [None]
